FAERS Safety Report 14413150 (Version 2)
Quarter: 2018Q4

REPORT INFORMATION
  Report Type: Spontaneous
  Country: JP (occurrence: JP)
  Receive Date: 20180119
  Receipt Date: 20181019
  Transmission Date: 20190204
  Serious: Yes (Other)
  Sender: FDA-Public Use
  Company Number: JP-PFIZER INC-2018018871

PATIENT
  Age: 55 Year
  Sex: Male
  Weight: 93.6 kg

DRUGS (4)
  1. ENALAPRIL [Suspect]
     Active Substance: ENALAPRIL
     Indication: CARDIAC FAILURE
     Dosage: 1.25 MG, 1X/DAY
     Route: 048
     Dates: start: 20180105, end: 20180108
  2. SELARA 25MG [Suspect]
     Active Substance: EPLERENONE
     Indication: CARDIAC FAILURE
     Dosage: 25 MG, 1X/DAY
     Route: 048
     Dates: start: 20180105, end: 20180108
  3. TAKECAB [Suspect]
     Active Substance: VONOPRAZAN FUMURATE
     Indication: CARDIAC FAILURE
     Dosage: 10 MG, 1X/DAY
     Route: 048
     Dates: start: 20180105, end: 20180108
  4. BISOPROLOL FUMARATE. [Concomitant]
     Active Substance: BISOPROLOL FUMARATE
     Dosage: UNK

REACTIONS (1)
  - Drug-induced liver injury [Recovered/Resolved]

NARRATIVE: CASE EVENT DATE: 20180108
